FAERS Safety Report 8195664-3 (Version None)
Quarter: 2012Q1

REPORT INFORMATION
  Report Type: 
  Country: None (occurrence: None)
  Receive Date: 20120308
  Receipt Date: 20120224
  Transmission Date: 20120608
  Serious: Yes (Hospitalization, Other)
  Sender: FDA-Public Use
  Company Number: US-ELI_LILLY_AND_COMPANY-US201202007844

PATIENT
  Sex: Male

DRUGS (13)
  1. METHYLPREDNISOLONE [Concomitant]
  2. LORAZEPAM [Concomitant]
  3. KETOROLAC TROMETHAMINE [Concomitant]
  4. LIDOCAINE [Concomitant]
  5. ASPIRIN [Concomitant]
  6. TOPROL-XL [Concomitant]
  7. NEXIUM [Concomitant]
  8. CYMBALTA [Suspect]
     Indication: BACK PAIN
     Dosage: 60 MG, QD
     Dates: end: 20120201
  9. CLONIDINE [Concomitant]
  10. ZOSYN [Concomitant]
  11. FUROSEMIDE [Concomitant]
  12. HEPARIN SODIUM [Concomitant]
  13. LABETALOL HCL [Concomitant]

REACTIONS (2)
  - NAUSEA [None]
  - OESOPHAGEAL CARCINOMA [None]
